FAERS Safety Report 7801948-8 (Version None)
Quarter: 2011Q4

REPORT INFORMATION
  Report Type: 
  Country: None (occurrence: None)
  Receive Date: 20111007
  Receipt Date: 20111007
  Transmission Date: 20120403
  Serious: No
  Sender: FDA-Public Use
  Company Number: None

PATIENT
  Age: 62 Year
  Sex: Female
  Weight: 59.874 kg

DRUGS (1)
  1. CLINDAMYCIN HCL [Suspect]
     Indication: KNEE OPERATION
     Dosage: ONE EVERY 6 HOURS

REACTIONS (2)
  - DYSPEPSIA [None]
  - HEADACHE [None]
